FAERS Safety Report 9170437 (Version 4)
Quarter: 2013Q1

REPORT INFORMATION
  Report Type: Spontaneous
  Country: GB (occurrence: None)
  Receive Date: 20130311
  Receipt Date: 20130320
  Transmission Date: 20140127
  Serious: Yes (Hospitalization, Disabling, Other)
  Sender: FDA-Public Use
  Company Number: AUR-APL-2013-01975

PATIENT
  Age: 39 Year
  Sex: Female
  Weight: 69.85 kg

DRUGS (3)
  1. CITALOPRAM [Suspect]
     Indication: ANXIETY
     Route: 048
     Dates: start: 20130131
  2. CITALOPRAM [Suspect]
     Indication: DEPRESSION
     Route: 048
     Dates: start: 20130131
  3. IBUPROFEN (IBUPROFEN) [Suspect]
     Indication: PAIN

REACTIONS (7)
  - Oropharyngeal pain [None]
  - Pain [None]
  - Vaginal haemorrhage [None]
  - Malaise [None]
  - Haemoglobin decreased [None]
  - Anaemia [None]
  - Drug interaction [None]
